FAERS Safety Report 8017539-2 (Version None)
Quarter: 2011Q4

REPORT INFORMATION
  Report Type: 
  Country: None (occurrence: None)
  Receive Date: 20111228
  Receipt Date: 20111228
  Transmission Date: 20120403
  Serious: Yes (Hospitalization, Disabling)
  Sender: FDA-Public Use
  Company Number: None

PATIENT
  Sex: Female
  Weight: 108.8633 kg

DRUGS (1)
  1. ACETAZOLAMIDE [Suspect]
     Indication: CEREBELLAR ATAXIA
     Dosage: 250 MG EACH 4 X A DAY
     Dates: start: 20111003, end: 20111114

REACTIONS (3)
  - CONDITION AGGRAVATED [None]
  - GRAND MAL CONVULSION [None]
  - CEREBELLAR ATAXIA [None]
